FAERS Safety Report 23922757 (Version 1)
Quarter: 2024Q2

REPORT INFORMATION
  Report Type: Spontaneous
  Country: AU (occurrence: AU)
  Receive Date: 20240531
  Receipt Date: 20240531
  Transmission Date: 20240716
  Serious: Yes (Hospitalization)
  Sender: FDA-Public Use
  Company Number: AU-GE HEALTHCARE-2024CSU005529

PATIENT
  Age: 49 Year
  Sex: Female
  Weight: 68 kg

DRUGS (1)
  1. OMNIPAQUE [Suspect]
     Active Substance: IOHEXOL
     Indication: Computerised tomogram liver
     Dosage: 100 ML, TOTAL
     Route: 042
     Dates: start: 20240521, end: 20240521

REACTIONS (6)
  - Sneezing [Recovering/Resolving]
  - Dry throat [Recovering/Resolving]
  - Throat tightness [Recovering/Resolving]
  - Cough [Recovering/Resolving]
  - Nasal pruritus [Recovering/Resolving]
  - Nausea [Recovering/Resolving]

NARRATIVE: CASE EVENT DATE: 20240521
